FAERS Safety Report 12427145 (Version 1)
Quarter: 2016Q2

REPORT INFORMATION
  Report Type: Report from Study
  Country: US (occurrence: US)
  Receive Date: 20160601
  Receipt Date: 20160601
  Transmission Date: 20160815
  Serious: No
  Sender: FDA-Public Use
  Company Number: US-AMGEN-USASL2016068322

PATIENT
  Age: 42 Year
  Sex: Female

DRUGS (1)
  1. ENBREL [Suspect]
     Active Substance: ETANERCEPT
     Indication: PSORIATIC ARTHROPATHY
     Dosage: 50 MG, QWK
     Route: 065
     Dates: start: 201512

REACTIONS (5)
  - Hypersensitivity [Unknown]
  - Thyroid mass [Unknown]
  - Finger deformity [Recovered/Resolved]
  - Arthropathy [Unknown]
  - Rash generalised [Unknown]

NARRATIVE: CASE EVENT DATE: 201605
